FAERS Safety Report 13983596 (Version 1)
Quarter: 2017Q3

REPORT INFORMATION
  Report Type: Spontaneous
  Country: BR (occurrence: BR)
  Receive Date: 20170918
  Receipt Date: 20170918
  Transmission Date: 20171128
  Serious: Yes (Other)
  Sender: FDA-Public Use
  Company Number: BR-PFIZER INC-2017397009

PATIENT
  Age: 76 Year
  Sex: Female

DRUGS (2)
  1. DIPROSPAN /00582101/ [Concomitant]
     Indication: BACK DISORDER
     Dosage: UNK (ONE APPLICATION)
  2. CELEBRA [Suspect]
     Active Substance: CELECOXIB
     Indication: BACK DISORDER
     Dosage: 200 MG, TWICE A DAY (EVERY 12 HOURS)
     Dates: start: 20150620

REACTIONS (4)
  - Drug prescribing error [Unknown]
  - Gait inability [Unknown]
  - Back pain [Unknown]
  - Condition aggravated [Unknown]

NARRATIVE: CASE EVENT DATE: 20170907
